FAERS Safety Report 11992684 (Version 1)
Quarter: 2016Q1

REPORT INFORMATION
  Report Type: Spontaneous
  Country: US (occurrence: None)
  Receive Date: 20160202
  Receipt Date: 20160202
  Transmission Date: 20160526
  Serious: Yes (Death, Hospitalization)
  Sender: FDA-Public Use
  Company Number: None

PATIENT
  Age: 12 Year
  Sex: Male
  Weight: 36.8 kg

DRUGS (6)
  1. ONCASPAR [Suspect]
     Active Substance: PEGASPARGASE
     Dates: end: 20151207
  2. METHOTREXATE [Suspect]
     Active Substance: METHOTREXATE
     Dates: end: 20151230
  3. VINCRISTINE SULFATE. [Suspect]
     Active Substance: VINCRISTINE SULFATE
     Dates: end: 20151204
  4. THIOGUANINE (6-TG) [Suspect]
     Active Substance: THIOGUANINE
     Dates: end: 20151230
  5. CYTARABINE. [Suspect]
     Active Substance: CYTARABINE
     Dates: end: 20160101
  6. CYCLOPHOSPHAMIDE. [Suspect]
     Active Substance: CYCLOPHOSPHAMIDE
     Dates: end: 20160101

REACTIONS (10)
  - Neutropenia [None]
  - Leukoencephalopathy [None]
  - Respiratory distress [None]
  - Blood culture positive [None]
  - Pyrexia [None]
  - Hypercapnia [None]
  - Hypotension [None]
  - Candida infection [None]
  - Confusional state [None]
  - Acidosis [None]

NARRATIVE: CASE EVENT DATE: 20160101
